FAERS Safety Report 5276022-8 (Version None)
Quarter: 2007Q1

REPORT INFORMATION
  Report Type: 
  Country: None (occurrence: None)
  Receive Date: 20061213
  Receipt Date: 20050922
  Transmission Date: 20070707
  Serious: Yes (Disabling)
  Sender: FDA-Public Use
  Company Number: 2005UW14265

PATIENT
  Sex: Female

DRUGS (3)
  1. SEROQUEL [Suspect]
     Dates: start: 20030101, end: 20040101
  2. ZYPREXA [Suspect]
     Dates: start: 20030101, end: 20040101
  3. RISPERDAL [Suspect]
     Dates: start: 20030101, end: 20040101

REACTIONS (1)
  - DIABETES MELLITUS [None]
